FAERS Safety Report 10050273 (Version 1)
Quarter: 2014Q2

REPORT INFORMATION
  Report Type: Spontaneous
  Country: US (occurrence: US)
  Receive Date: 20140401
  Receipt Date: 20140401
  Transmission Date: 20141212
  Serious: Yes (Hospitalization, Other)
  Sender: FDA-Public Use
  Company Number: PHHY2014US036002

PATIENT
  Age: 45 Year
  Sex: Female

DRUGS (2)
  1. AMITRIPTYLINE [Suspect]
     Dosage: 300 MG, BID
  2. OXYCODONE [Concomitant]
     Indication: BACK PAIN

REACTIONS (7)
  - Fall [Unknown]
  - Injury [Unknown]
  - Confusional state [Unknown]
  - Hypoaesthesia [Unknown]
  - Toxicity to various agents [Unknown]
  - Intentional product misuse [Unknown]
  - Drug abuse [Unknown]
